FAERS Safety Report 7651489-6 (Version None)
Quarter: 2011Q3

REPORT INFORMATION
  Report Type: 
  Country: None (occurrence: None)
  Receive Date: 20110802
  Receipt Date: 20110725
  Transmission Date: 20111222
  Serious: Yes (Other)
  Sender: FDA-Public Use
  Company Number: PHHY2011US67830

PATIENT
  Sex: Female

DRUGS (6)
  1. VITAMIN D [Concomitant]
  2. OMEPRAZOLE [Concomitant]
  3. METOPROLOL TARTRATE [Concomitant]
  4. CALCIUM ACETATE [Concomitant]
  5. RECLAST [Suspect]
     Dosage: UNK
     Route: 042
  6. SIMVASTATIN [Concomitant]

REACTIONS (14)
  - FUNGAL INFECTION [None]
  - INFLUENZA LIKE ILLNESS [None]
  - MUSCLE SPASMS [None]
  - DIZZINESS [None]
  - MOVEMENT DISORDER [None]
  - VASCULAR RUPTURE [None]
  - DIARRHOEA [None]
  - HYPERHIDROSIS [None]
  - BLOOD CALCIUM DECREASED [None]
  - MUSCULOSKELETAL STIFFNESS [None]
  - GROIN PAIN [None]
  - PAIN IN EXTREMITY [None]
  - BLOOD GLUCOSE ABNORMAL [None]
  - DRUG HYPERSENSITIVITY [None]
